FAERS Safety Report 9372667 (Version 1)
Quarter: 2013Q2

REPORT INFORMATION
  Report Type: Spontaneous
  Country: CH (occurrence: CH)
  Receive Date: 20130627
  Receipt Date: 20130627
  Transmission Date: 20140414
  Serious: Yes (Hospitalization, Other)
  Sender: FDA-Public Use
  Company Number: CH-009507513-1306CHE010382

PATIENT
  Age: 36 Year
  Sex: Female

DRUGS (4)
  1. REMERON [Suspect]
     Dosage: 27 DF, ONCE
     Route: 048
     Dates: start: 20130522, end: 20130522
  2. AGOMELATINE [Suspect]
     Dosage: 21 DF, ONCE
     Route: 048
     Dates: start: 20130522, end: 20130522
  3. ZOLPIDEM TARTRATE [Suspect]
     Dosage: 10 DF, ONCE
     Route: 048
     Dates: start: 20130522, end: 20130522
  4. ALCOHOL [Suspect]
     Dosage: BEVERAGE
     Route: 048
     Dates: start: 20130522, end: 20130522

REACTIONS (5)
  - Suicide attempt [Recovered/Resolved]
  - Somnolence [Recovered/Resolved]
  - Confusional state [Recovered/Resolved]
  - Agitation [Recovered/Resolved]
  - Disorientation [Recovered/Resolved]
